FAERS Safety Report 20556720 (Version 1)
Quarter: 2022Q1

REPORT INFORMATION
  Report Type: Spontaneous
  Country: ES (occurrence: ES)
  Receive Date: 20220307
  Receipt Date: 20220307
  Transmission Date: 20220423
  Serious: Yes (Other)
  Sender: FDA-Public Use
  Company Number: ES-ABBVIE-22K-144-4303038-00

PATIENT
  Age: 27 Year
  Sex: Male

DRUGS (1)
  1. UPADACITINIB [Suspect]
     Active Substance: UPADACITINIB
     Indication: Product used for unknown indication
     Route: 048
     Dates: start: 20211203, end: 20220302

REACTIONS (6)
  - Syncope [Unknown]
  - Presyncope [Unknown]
  - Urticaria [Unknown]
  - Herpes zoster [Unknown]
  - Lymphopenia [Unknown]
  - Varicella [Unknown]

NARRATIVE: CASE EVENT DATE: 20211201
